FAERS Safety Report 9314104 (Version 1)
Quarter: 2013Q2

REPORT INFORMATION
  Report Type: Spontaneous
  Country: US (occurrence: None)
  Receive Date: 20130524
  Receipt Date: 20130524
  Transmission Date: 20140414
  Serious: Yes (Hospitalization)
  Sender: FDA-Public Use
  Company Number: None

PATIENT
  Age: 66 Year
  Sex: Male
  Weight: 91.6 kg

DRUGS (10)
  1. CYTARABINE [Suspect]
     Dosage: TOTAL DOSES 1400 MG
  2. DAUNORUBICIN [Suspect]
     Dosage: TOTAL DOSE 354 MG
  3. HYDROMORPHONE [Concomitant]
  4. LORAZEPAM [Concomitant]
  5. CEFEPIME [Concomitant]
  6. FLUCANOZOLE [Concomitant]
  7. METRONIDAZOLE [Concomitant]
  8. VALACYCLOVIR [Concomitant]
  9. VAMCOMYCIN 1500 MG [Concomitant]
  10. VAMCOMYCIN 25 MG [Concomitant]

REACTIONS (6)
  - Pancytopenia [None]
  - Febrile neutropenia [None]
  - Mucosal inflammation [None]
  - Oesophagitis [None]
  - Clostridium difficile colitis [None]
  - Renal failure acute [None]
